FAERS Safety Report 8731083 (Version 2)
Quarter: 2013Q1

REPORT INFORMATION
  Report Type: Spontaneous
  Country: US (occurrence: US)
  Receive Date: 20120820
  Receipt Date: 20130227
  Transmission Date: 20140127
  Serious: No
  Sender: FDA-Public Use
  Company Number: US-BIOGENIDEC-2012BI029533

PATIENT
  Age: 35 None
  Sex: Male

DRUGS (2)
  1. TYSABRI [Suspect]
     Indication: MULTIPLE SCLEROSIS
     Route: 042
     Dates: start: 20080730, end: 20120511
  2. TYSABRI [Suspect]
     Indication: MULTIPLE SCLEROSIS
     Route: 042
     Dates: start: 20120914

REACTIONS (15)
  - Back pain [Not Recovered/Not Resolved]
  - Body temperature increased [Unknown]
  - Depression [Not Recovered/Not Resolved]
  - Dysarthria [Unknown]
  - Amnesia [Unknown]
  - Eye irritation [Unknown]
  - Ocular hyperaemia [Unknown]
  - Blepharospasm [Unknown]
  - Hypoaesthesia [Unknown]
  - Hearing impaired [Unknown]
  - Body temperature decreased [Unknown]
  - Nuclear magnetic resonance imaging abnormal [Unknown]
  - Incoherent [Unknown]
  - Abasia [Recovered/Resolved]
  - Multiple sclerosis relapse [Recovered/Resolved with Sequelae]
